FAERS Safety Report 5684216-2 (Version None)
Quarter: 2008Q1

REPORT INFORMATION
  Report Type: 
  Country: None (occurrence: None)
  Receive Date: 20080328
  Receipt Date: 20080108
  Transmission Date: 20080703
  Serious: No
  Sender: FDA-Public Use
  Company Number: US-AMGEN-KDL256634

PATIENT
  Sex: Female
  Weight: 47.2 kg

DRUGS (7)
  1. NEULASTA [Suspect]
     Indication: CHEMOTHERAPY
     Route: 058
     Dates: start: 20071101
  2. CARBOPLATIN [Concomitant]
     Dates: start: 20071030
  3. TAXOL [Concomitant]
     Dates: start: 20071030
  4. ATENOLOL [Concomitant]
     Dates: start: 20070730
  5. LOVASTATIN [Concomitant]
     Dates: start: 20070726
  6. PRILOSEC [Concomitant]
     Dates: start: 20071119
  7. COMPAZINE [Concomitant]
     Dates: start: 20071024

REACTIONS (1)
  - RASH GENERALISED [None]
